FAERS Safety Report 17027763 (Version 1)
Quarter: 2019Q4

REPORT INFORMATION
  Report Type: Spontaneous
  Country: US (occurrence: US)
  Receive Date: 20191113
  Receipt Date: 20191113
  Transmission Date: 20200122
  Serious: No
  Sender: FDA-Public Use
  Company Number: US-TEVA-2019-US-1134542

PATIENT
  Sex: Male

DRUGS (1)
  1. METHOTREXATE INJECTION [Suspect]
     Active Substance: METHOTREXATE
     Indication: RHEUMATOID ARTHRITIS
     Dosage: DOSE STRENGTH:  25 MG/ML, 50 MG
     Route: 058

REACTIONS (2)
  - Product prescribing error [Unknown]
  - Intercepted product dispensing error [Unknown]
